FAERS Safety Report 4390845-9 (Version None)
Quarter: 2004Q3

REPORT INFORMATION
  Report Type: 
  Country: None (occurrence: None)
  Receive Date: 20040706
  Receipt Date: 20040706
  Transmission Date: 20050211
  Serious: Yes (Hospitalization)
  Sender: FDA-Public Use
  Company Number: None

PATIENT
  Age: 63 Year
  Sex: Female
  Weight: 101.1521 kg

DRUGS (2)
  1. BENAZEPRIL HCL [Suspect]
     Indication: CARDIAC FAILURE CONGESTIVE
     Dates: start: 20040701, end: 20040701
  2. BENAZEPRIL HCL [Suspect]
     Indication: DIABETES MELLITUS
     Dates: start: 20040701, end: 20040701

REACTIONS (1)
  - HYPOTENSION [None]
